FAERS Safety Report 16343825 (Version 1)
Quarter: 2019Q2

REPORT INFORMATION
  Report Type: Spontaneous
  Country: CN (occurrence: CN)
  Receive Date: 20190522
  Receipt Date: 20190522
  Transmission Date: 20190711
  Serious: Yes (Hospitalization)
  Sender: FDA-Public Use
  Company Number: CN-PFIZER INC-2019216766

PATIENT
  Age: 76 Year
  Sex: Female
  Weight: 50 kg

DRUGS (2)
  1. SODIUM CHLORIDE. [Concomitant]
     Active Substance: SODIUM CHLORIDE
     Indication: VEHICLE SOLUTION USE
     Dosage: 250 ML, 3X/DAY
     Route: 041
     Dates: start: 20181222, end: 20181222
  2. PIPERACILLIN/TAZOBACTAM [Suspect]
     Active Substance: PIPERACILLIN SODIUM\TAZOBACTAM SODIUM
     Indication: URINARY TRACT INFECTION
     Dosage: 4.500 G, 3X/DAY
     Route: 041
     Dates: start: 20181222, end: 20181222

REACTIONS (4)
  - Hyperhidrosis [Recovering/Resolving]
  - Chest discomfort [Recovering/Resolving]
  - Pruritus [Recovering/Resolving]
  - Dizziness [Recovering/Resolving]

NARRATIVE: CASE EVENT DATE: 20181222
